FAERS Safety Report 20412903 (Version 1)
Quarter: 2022Q1

REPORT INFORMATION
  Report Type: Spontaneous
  Country: JP (occurrence: JP)
  Receive Date: 20220201
  Receipt Date: 20220201
  Transmission Date: 20220423
  Serious: Yes (Death, Other)
  Sender: FDA-Public Use
  Company Number: JP-002147023-NVSJ2022JP002030

PATIENT

DRUGS (3)
  1. RUXOLITINIB [Suspect]
     Active Substance: RUXOLITINIB
     Indication: Myelofibrosis
     Dosage: UNK
     Route: 048
  2. HYDREA [Suspect]
     Active Substance: HYDROXYUREA
     Indication: Myelofibrosis
     Dosage: UNK
     Route: 065
  3. RANIMUSTINE [Suspect]
     Active Substance: RANIMUSTINE
     Indication: Myelofibrosis
     Dosage: UNK
     Route: 065

REACTIONS (4)
  - Myelofibrosis [Fatal]
  - Malignant neoplasm progression [Fatal]
  - Second primary malignancy [Unknown]
  - Langerhans^ cell histiocytosis [Unknown]
